FAERS Safety Report 4883465-0 (Version None)
Quarter: 2006Q1

REPORT INFORMATION
  Report Type: 
  Country: None (occurrence: None)
  Receive Date: 20060118
  Receipt Date: 20051005
  Transmission Date: 20060701
  Serious: Yes (Hospitalization, Disabling)
  Sender: FDA-Public Use
  Company Number: US-MERCK-0510USA04364

PATIENT
  Age: 52 Year
  Sex: Female
  Weight: 68 kg

DRUGS (6)
  1. VIOXX [Suspect]
     Indication: PAIN IN EXTREMITY
     Route: 048
     Dates: start: 20011016, end: 20020116
  2. ALLEGRA [Concomitant]
     Route: 065
  3. MEPREDNISONE [Concomitant]
     Route: 048
  4. ZITHROMAX [Concomitant]
     Route: 065
  5. ACETASOL [Concomitant]
     Route: 065
  6. NASONEX [Concomitant]
     Indication: PAIN IN EXTREMITY
     Route: 055

REACTIONS (3)
  - ISCHAEMIC STROKE [None]
  - NEPHROLITHIASIS [None]
  - PARATHYROID DISORDER [None]
